FAERS Safety Report 7035532-3 (Version None)
Quarter: 2010Q4

REPORT INFORMATION
  Report Type: 
  Country: None (occurrence: None)
  Receive Date: 20101008
  Receipt Date: 20101004
  Transmission Date: 20110411
  Serious: Yes (Death)
  Sender: FDA-Public Use
  Company Number: GR-CELGENEUS-066-20785-10100139

PATIENT
  Sex: Female

DRUGS (2)
  1. THALIDOMIDE [Suspect]
     Indication: MULTIPLE MYELOMA
     Route: 048
     Dates: start: 20090427
  2. THALIDOMIDE [Suspect]
     Route: 048
     Dates: start: 20090406

REACTIONS (1)
  - CARDIAC DISORDER [None]
